FAERS Safety Report 22765319 (Version 2)
Quarter: 2024Q3

REPORT INFORMATION
  Report Type: Spontaneous
  Country: US (occurrence: US)
  Receive Date: 20230731
  Receipt Date: 20240830
  Transmission Date: 20241016
  Serious: No
  Sender: CIPLA
  Company Number: US-CIPLA LTD.-2023US03248

PATIENT

DRUGS (1)
  1. SAJAZIR [Suspect]
     Active Substance: ICATIBANT ACETATE
     Indication: Complement factor abnormal
     Dosage: 30 MILLIGRAM, PRN (STRENGTH- 30MG PFS 3ML)30 MG PFS 3 ML - 3/PK
     Route: 058
     Dates: start: 20230601

REACTIONS (4)
  - Hereditary angioedema [Not Recovered/Not Resolved]
  - Condition aggravated [Unknown]
  - Emotional disorder [Unknown]
  - Anxiety [Unknown]

NARRATIVE: CASE EVENT DATE: 20230101
